FAERS Safety Report 23490009 (Version 1)
Quarter: 2024Q1

REPORT INFORMATION
  Report Type: Spontaneous
  Country: US (occurrence: None)
  Receive Date: 20240206
  Receipt Date: 20240206
  Transmission Date: 20240409
  Serious: No
  Sender: FDA-Public Use
  Company Number: US-ROCHE-3474605

PATIENT
  Sex: Female

DRUGS (23)
  1. XOLAIR [Suspect]
     Active Substance: OMALIZUMAB
     Indication: Asthma
     Route: 058
  2. IPRATROPIUM [Concomitant]
     Active Substance: IPRATROPIUM
  3. ALBUTEROL [Concomitant]
     Active Substance: ALBUTEROL
  4. AZELASTINE [Concomitant]
     Active Substance: AZELASTINE\AZELASTINE HYDROCHLORIDE
  5. BIOTIN [Concomitant]
     Active Substance: BIOTIN
  6. CLARITIN [Concomitant]
     Active Substance: LORATADINE
  7. CODEINE [Concomitant]
     Active Substance: CODEINE
  8. CRANBERRY [Concomitant]
     Active Substance: CRANBERRY
  9. DILANTIN [Concomitant]
     Active Substance: PHENYTOIN
  10. EPIPEN [Concomitant]
     Active Substance: EPINEPHRINE
  11. FLONASE [Concomitant]
     Active Substance: FLUTICASONE PROPIONATE
  12. GABAPENTIN [Concomitant]
     Active Substance: GABAPENTIN
  13. IPRATROPIUM [Concomitant]
     Active Substance: IPRATROPIUM
  14. KEPPRA [Concomitant]
     Active Substance: LEVETIRACETAM
  15. KLONOPIN [Concomitant]
     Active Substance: CLONAZEPAM
  16. OZEMPIC [Concomitant]
     Active Substance: SEMAGLUTIDE
  17. PANTOPRAZOLE [Concomitant]
     Active Substance: PANTOPRAZOLE
  18. PRAZOSIN [Concomitant]
     Active Substance: PRAZOSIN
  19. SINGULAIR [Concomitant]
     Active Substance: MONTELUKAST SODIUM
  20. SOMA [Concomitant]
     Active Substance: CARISOPRODOL
  21. TRELEGY ELLIPTA [Concomitant]
     Active Substance: FLUTICASONE FUROATE\UMECLIDINIUM BROMIDE\VILANTEROL TRIFENATATE
  22. VALTREX [Concomitant]
     Active Substance: VALACYCLOVIR HYDROCHLORIDE
  23. ZYRTEC [Concomitant]
     Active Substance: CETIRIZINE HYDROCHLORIDE

REACTIONS (1)
  - Throat irritation [Not Recovered/Not Resolved]
